FAERS Safety Report 9154330 (Version 2)
Quarter: 2013Q2

REPORT INFORMATION
  Report Type: Other
  Country: US (occurrence: US)
  Receive Date: 20130311
  Receipt Date: 20130423
  Transmission Date: 20140414
  Serious: Yes (Other)
  Sender: FDA-Public Use
  Company Number: US-SHIRE-ALL1-2013-01310

PATIENT
  Age: 64 Year
  Sex: Female

DRUGS (3)
  1. VPRIV [Suspect]
     Indication: GAUCHER^S DISEASE
     Dosage: 3600 IU, OTHER (BI-MONTHLY)
     Route: 041
     Dates: start: 20100423
  2. TYLENOL                            /00020001/ [Concomitant]
     Indication: PREMEDICATION
     Dosage: UNK, UNKNOWN
     Route: 065
  3. BENADRYL                           /00000402/ [Concomitant]
     Indication: PREMEDICATION
     Dosage: UNK, UNKNOWN
     Route: 042

REACTIONS (2)
  - Chills [Not Recovered/Not Resolved]
  - Infusion related reaction [Not Recovered/Not Resolved]
